FAERS Safety Report 18251327 (Version 2)
Quarter: 2020Q4

REPORT INFORMATION
  Report Type: Spontaneous
  Country: DE (occurrence: DE)
  Receive Date: 20200910
  Receipt Date: 20201005
  Transmission Date: 20210113
  Serious: Yes (Death, Other)
  Sender: FDA-Public Use
  Company Number: DE-ALVOGEN-2020-ALVOGEN-114225

PATIENT
  Age: 66 Year
  Sex: Male
  Weight: 70.4 kg

DRUGS (18)
  1. ATENOLOL. [Suspect]
     Active Substance: ATENOLOL
     Indication: PRODUCT USED FOR UNKNOWN INDICATION
     Dosage: UNK
     Route: 048
  2. PEMBROLIZUMAB. [Suspect]
     Active Substance: PEMBROLIZUMAB
     Indication: IMMUNOCHEMOTHERAPY
     Dosage: 200 MG
     Route: 065
     Dates: start: 20200615, end: 20200622
  3. DOCETAXEL. [Suspect]
     Active Substance: DOCETAXEL
     Indication: METASTATIC NEOPLASM
     Route: 065
  4. CETUXIMAB. [Suspect]
     Active Substance: CETUXIMAB
     Indication: NEOPLASM RECURRENCE
     Dosage: 250 MILLIGRAMS PER SQUARE METRE, DAY 8
     Route: 065
     Dates: start: 201909
  5. CISPLATIN. [Suspect]
     Active Substance: CISPLATIN
     Indication: METASTATIC NEOPLASM
     Dosage: 75 MILLIGRAMS PER SQUARE METRE
     Route: 065
     Dates: start: 201908
  6. CETUXIMAB. [Suspect]
     Active Substance: CETUXIMAB
     Indication: NEOPLASM RECURRENCE
     Dosage: 250 MILLIGRAMS PER SQUARE METRE, DAY 8
     Route: 065
  7. CARBOPLATIN. [Suspect]
     Active Substance: CARBOPLATIN
     Indication: IMMUNOCHEMOTHERAPY
     Dosage: 5 MG/M2 DAY 1 AND REPETITION ON DAY 21
     Route: 065
     Dates: start: 20200615, end: 20200622
  8. CETUXIMAB. [Suspect]
     Active Substance: CETUXIMAB
     Indication: METASTATIC NEOPLASM
     Dosage: 250 MILLIGRAMS PER SQUARE METRE, DAY 8
     Route: 065
     Dates: start: 201909
  9. DOCETAXEL. [Suspect]
     Active Substance: DOCETAXEL
     Indication: NEOPLASM RECURRENCE
     Route: 065
  10. CISPLATIN. [Suspect]
     Active Substance: CISPLATIN
     Indication: METASTATIC NEOPLASM
     Dosage: 75 MILLIGRAMS PER SQUARE METRE
     Route: 065
     Dates: start: 201912
  11. CLEXANE [Suspect]
     Active Substance: ENOXAPARIN SODIUM
     Indication: ANTICOAGULANT THERAPY
     Dosage: SHOULD BE PAUSED ONE DAY BEFORE PORT INSTALLEMENT ON 07JUL.
     Route: 065
  12. OLIMEL [Suspect]
     Active Substance: AMINO ACIDS\DEXTROSE\SOYBEAN OIL
     Indication: PARENTERAL NUTRITION
     Dosage: 1000 ML DAILY
     Route: 042
  13. FLUOROURACIL. [Suspect]
     Active Substance: FLUOROURACIL
     Indication: IMMUNOCHEMOTHERAPY
     Dosage: OVER 96 HOURS
     Route: 065
     Dates: start: 20200615, end: 20200622
  14. CISPLATIN. [Suspect]
     Active Substance: CISPLATIN
     Indication: NEOPLASM RECURRENCE
     Dosage: 75 MILLIGRAMS PER SQUARE METRE
     Route: 065
     Dates: start: 201908
  15. CISPLATIN. [Suspect]
     Active Substance: CISPLATIN
     Indication: NEOPLASM RECURRENCE
     Dosage: 75 MILLIGRAMS PER SQUARE METRE
     Route: 065
     Dates: start: 201912
  16. CERNEVIT [Suspect]
     Active Substance: VITAMINS
     Indication: PARENTERAL NUTRITION
     Route: 042
     Dates: start: 20200713, end: 20200728
  17. CETUXIMAB. [Suspect]
     Active Substance: CETUXIMAB
     Indication: METASTATIC NEOPLASM
     Dosage: 250 MILLIGRAMS PER SQUARE METRE, DAY 8
     Route: 065
  18. ADDEL TRACE [Suspect]
     Active Substance: ELECTROLYTES NOS\MINERALS
     Indication: PARENTERAL NUTRITION
     Route: 042
     Dates: start: 20200713, end: 20200728

REACTIONS (10)
  - Chills [Recovered/Resolved]
  - Peripheral coldness [Recovered/Resolved]
  - Pneumonia pneumococcal [Unknown]
  - Unresponsive to stimuli [Recovered/Resolved]
  - Eye movement disorder [Recovered/Resolved]
  - Cold sweat [Recovered/Resolved]
  - Tremor [Recovered/Resolved]
  - Tachycardia [Recovered/Resolved]
  - Pyrexia [Recovered/Resolved]
  - Death [Fatal]

NARRATIVE: CASE EVENT DATE: 20200726
